FAERS Safety Report 9391243 (Version 10)
Quarter: 2014Q2

REPORT INFORMATION
  Report Type: Report from Study
  Country: PL (occurrence: PL)
  Receive Date: 20130709
  Receipt Date: 20140509
  Transmission Date: 20141212
  Serious: Yes (Hospitalization)
  Sender: FDA-Public Use
  Company Number: PL-AMGEN-POLCT2013046736

PATIENT
  Age: 74 Year
  Sex: Female
  Weight: 57 kg

DRUGS (6)
  1. DENOSUMAB [Suspect]
     Indication: OSTEOPOROSIS POSTMENOPAUSAL
     Dosage: 60 MG, Q6MO
     Route: 058
     Dates: start: 20130320, end: 20130320
  2. METAZYDYNA [Concomitant]
     Dosage: 20 MG, UNK
     Route: 048
     Dates: start: 1998
  3. ACARD [Concomitant]
     Dosage: 75 MG, UNK
     Route: 048
     Dates: start: 2010
  4. CONCOR COR [Concomitant]
     Dosage: 2.5 MG, UNK
     Route: 048
     Dates: start: 1998
  5. OROCAL [Concomitant]
     Dosage: 2 UNK, UNK
     Route: 048
     Dates: start: 20130320
  6. FRAGMIN [Concomitant]
     Dosage: UNK
     Route: 058
     Dates: start: 201305, end: 20130604

REACTIONS (1)
  - Femur fracture [Recovered/Resolved]
